FAERS Safety Report 7691747-2 (Version None)
Quarter: 2011Q3

REPORT INFORMATION
  Report Type: 
  Country: None (occurrence: None)
  Receive Date: 20110818
  Receipt Date: 20110810
  Transmission Date: 20111222
  Serious: Yes (Hospitalization)
  Sender: FDA-Public Use
  Company Number: FR-GLAXOSMITHKLINE-B0723086A

PATIENT
  Age: 11 Year
  Sex: Female
  Weight: 49 kg

DRUGS (3)
  1. TRILEPTAL [Suspect]
     Indication: EPILEPSY
     Route: 048
     Dates: start: 20110318, end: 20110411
  2. LAMICTAL [Suspect]
     Indication: EPILEPSY
     Route: 048
     Dates: start: 20100924
  3. URBANYL [Concomitant]
     Indication: PRODUCT USED FOR UNKNOWN INDICATION
     Route: 048

REACTIONS (15)
  - RASH PAPULAR [None]
  - EPILEPSY [None]
  - DRUG HYPERSENSITIVITY [None]
  - DRUG RASH WITH EOSINOPHILIA AND SYSTEMIC SYMPTOMS [None]
  - FACE OEDEMA [None]
  - RASH PRURITIC [None]
  - MOUTH HAEMORRHAGE [None]
  - LYMPHADENOPATHY [None]
  - EPIDERMAL NECROSIS [None]
  - TOXIC SKIN ERUPTION [None]
  - DERMATITIS EXFOLIATIVE [None]
  - ASTHENIA [None]
  - PYREXIA [None]
  - INFLAMMATION [None]
  - SKIN EXFOLIATION [None]
